FAERS Safety Report 4832113-4 (Version None)
Quarter: 2005Q4

REPORT INFORMATION
  Report Type: 
  Country: None (occurrence: None)
  Receive Date: 20051114
  Receipt Date: 20051110
  Transmission Date: 20060501
  Serious: Yes (Death)
  Sender: FDA-Public Use
  Company Number: B0399526A

PATIENT
  Age: 31 Year
  Sex: Male

DRUGS (4)
  1. ZIDOVUDINE [Suspect]
     Indication: HIV INFECTION
  2. LAMIVUDINE [Suspect]
     Indication: HIV INFECTION
  3. NELFINAVIR MESYLATE (NELFINAVIR MESYLATE) [Concomitant]
     Indication: HIV INFECTION
     Dosage: 2500 MG
  4. NEVIRAPINE [Suspect]
     Indication: HIV INFECTION
     Dosage: 400 MG

REACTIONS (6)
  - BULBAR PALSY [None]
  - CSF VIRUS IDENTIFIED [None]
  - IMMUNE RECONSTITUTION SYNDROME [None]
  - JC VIRUS INFECTION [None]
  - PROGRESSIVE MULTIFOCAL LEUKOENCEPHALOPATHY [None]
  - RESPIRATORY FAILURE [None]
